FAERS Safety Report 7648521-2 (Version None)
Quarter: 2011Q3

REPORT INFORMATION
  Report Type: 
  Country: None (occurrence: None)
  Receive Date: 20110801
  Receipt Date: 20110728
  Transmission Date: 20111222
  Serious: Yes (Hospitalization, Other)
  Sender: FDA-Public Use
  Company Number: US-PFIZER INC-2011117269

PATIENT
  Sex: Female

DRUGS (10)
  1. ELAVIL [Concomitant]
     Indication: CHRONIC OBSTRUCTIVE PULMONARY DISEASE
     Dosage: UNK
  2. VERAPAMIL [Concomitant]
     Indication: CARDIAC DISORDER
     Dosage: UNK
     Dates: start: 20081101
  3. NITROGLYCERIN [Concomitant]
     Indication: CARDIAC DISORDER
     Dosage: UNK
     Dates: start: 20081101
  4. CHANTIX [Suspect]
     Indication: SMOKING CESSATION THERAPY
     Dosage: 1 MG, UNK
     Dates: start: 20090601, end: 20090901
  5. PROZAC [Concomitant]
     Indication: ANXIETY
  6. TRICOR [Concomitant]
     Indication: CARDIAC DISORDER
     Dosage: UNK
     Dates: start: 20081101
  7. PLAVIX [Concomitant]
     Indication: CARDIAC DISORDER
     Dosage: UNK
     Dates: start: 20081101
  8. CRESTOR [Concomitant]
     Indication: CARDIAC DISORDER
     Dosage: UNK
     Dates: start: 20090301
  9. PROZAC [Concomitant]
     Indication: DEPRESSION
     Dosage: UNK
  10. PROZAC [Concomitant]
     Indication: BIPOLAR DISORDER

REACTIONS (6)
  - SUICIDE ATTEMPT [None]
  - INTENTIONAL OVERDOSE [None]
  - BIPOLAR DISORDER [None]
  - DEPRESSION [None]
  - MENTAL DISORDER [None]
  - ANXIETY [None]
